FAERS Safety Report 11334877 (Version 4)
Quarter: 2018Q1

REPORT INFORMATION
  Report Type: Report from Study
  Country: US (occurrence: US)
  Receive Date: 20150804
  Receipt Date: 20180206
  Transmission Date: 20180508
  Serious: Yes (Hospitalization, Other)
  Sender: FDA-Public Use
  Company Number: PHEH2015US014550

PATIENT
  Age: 60 Year
  Sex: Female
  Weight: 46.71 kg

DRUGS (9)
  1. MOGADON [Concomitant]
     Active Substance: NITRAZEPAM
     Indication: SEIZURE
     Dosage: 1 DF, QID
     Route: 048
     Dates: start: 1986
  2. DILANTIN [Suspect]
     Active Substance: PHENYTOIN
     Indication: GENERALISED TONIC-CLONIC SEIZURE
     Dosage: 100 MG, TID (1 IN MORNING, 1 IN AFTERNOON AND 1 IN NIGHT)
     Route: 048
     Dates: start: 19810629
  3. PHENOBARBITAL. [Concomitant]
     Active Substance: PHENOBARBITAL
     Indication: PRODUCT USED FOR UNKNOWN INDICATION
     Route: 065
  4. DILANTIN [Suspect]
     Active Substance: PHENYTOIN
     Dosage: 100 MG, BID (1 IN MORNING AND 1 IN NIGHT)
     Route: 048
  5. NEURONTIN [Concomitant]
     Active Substance: GABAPENTIN
     Indication: PRODUCT USED FOR UNKNOWN INDICATION
     Route: 065
  6. TEGRETOL [Suspect]
     Active Substance: CARBAMAZEPINE
     Indication: SEIZURE
     Dosage: 1200 MG, QD (200 MG, EVERY 4 HOURS)
     Route: 048
     Dates: start: 1979
  7. PREDNISONE. [Suspect]
     Active Substance: PREDNISONE
     Indication: SYSTEMIC LUPUS ERYTHEMATOSUS
     Route: 065
  8. CENTRUM [Concomitant]
     Active Substance: VITAMINS
     Indication: PRODUCT USED FOR UNKNOWN INDICATION
     Dosage: 1 DF, QD
     Route: 048
  9. IRON [Concomitant]
     Active Substance: IRON
     Indication: PRODUCT USED FOR UNKNOWN INDICATION
     Dosage: 325 MG, TID
     Route: 048

REACTIONS (5)
  - Seizure [Unknown]
  - Cerebrovascular accident [Recovered/Resolved]
  - Bone disorder [Unknown]
  - Myocardial infarction [Unknown]
  - Condition aggravated [Unknown]

NARRATIVE: CASE EVENT DATE: 2001
